FAERS Safety Report 21391662 (Version 1)
Quarter: 2022Q3

REPORT INFORMATION
  Report Type: Spontaneous
  Country: DE (occurrence: DE)
  Receive Date: 20220929
  Receipt Date: 20220929
  Transmission Date: 20221027
  Serious: Yes (Hospitalization, Other)
  Sender: FDA-Public Use
  Company Number: DE-ADRED-08401-01

PATIENT
  Age: 74 Year
  Sex: Male
  Weight: 83 kg

DRUGS (9)
  1. FLUOROURACIL [Suspect]
     Active Substance: FLUOROURACIL
     Dosage: UNK
  2. ASPIRIN [Suspect]
     Active Substance: ASPIRIN
     Dosage: 100 MG, QD
  3. OXALIPLATIN [Suspect]
     Active Substance: OXALIPLATIN
     Dosage: UNK
  4. NIVOLUMAB [Suspect]
     Active Substance: NIVOLUMAB
     Dosage: UNK
  5. LEUCOVORIN [Suspect]
     Active Substance: LEUCOVORIN
     Dosage: UNK
  6. RAMIPRIL [Concomitant]
     Active Substance: RAMIPRIL
     Dosage: 2.5 MG, 1-0-0-0
  7. PANTOPRAZOLE [Concomitant]
     Active Substance: PANTOPRAZOLE
     Dosage: 40 MG, 1-0-0-0
  8. ATORVASTATIN [Concomitant]
     Active Substance: ATORVASTATIN
     Dosage: 40 MG, 0-0-1-0
  9. BISOPROLOL [Concomitant]
     Active Substance: BISOPROLOL
     Dosage: 2.5 MG, 1-0-0-0

REACTIONS (12)
  - Syncope [Unknown]
  - Bradycardia [Unknown]
  - Loss of consciousness [Unknown]
  - Haematochezia [Unknown]
  - Systemic infection [Unknown]
  - Wound [Unknown]
  - General physical health deterioration [Unknown]
  - Dizziness [Unknown]
  - Hyperhidrosis [Unknown]
  - Hypotension [Unknown]
  - Anaemia [Unknown]
  - Fall [Unknown]
